FAERS Safety Report 5216356-6 (Version None)
Quarter: 2007Q1

REPORT INFORMATION
  Report Type: 
  Country: None (occurrence: None)
  Receive Date: 20061124
  Receipt Date: 20050628
  Transmission Date: 20070707
  Serious: Yes (Hospitalization)
  Sender: FDA-Public Use
  Company Number: 2005UW09770

PATIENT
  Sex: Male

DRUGS (1)
  1. PRILOSEC [Suspect]
     Dosage: 20 MG DAILY PO
     Route: 048
     Dates: start: 20050517, end: 20050601

REACTIONS (1)
  - PLATELET COUNT DECREASED [None]
